FAERS Safety Report 5007678-2 (Version None)
Quarter: 2006Q2

REPORT INFORMATION
  Report Type: 
  Country: None (occurrence: None)
  Receive Date: 20060518
  Receipt Date: 20060505
  Transmission Date: 20061013
  Serious: Yes (Other)
  Sender: FDA-Public Use
  Company Number: 2006061006

PATIENT
  Age: 59 Year
  Sex: Female

DRUGS (13)
  1. LYRICA [Suspect]
     Indication: ILL-DEFINED DISORDER
     Dosage: (2 IN 1 D)
  2. CENTRUM SILVER (ASCORBIC ACID, CALCIUM MINERALS NOS, RETINOL, TOCOPHER [Concomitant]
  3. MAGNESIUM   (MAGNESIUM) [Concomitant]
  4. LORTAB [Concomitant]
  5. ZOLOFT [Concomitant]
  6. CELEBREX [Concomitant]
  7. FLEXERIL [Concomitant]
  8. WELLBUTRIN [Concomitant]
  9. ALL OTHER THERAPEUTIC PRODUCTS [Concomitant]
  10. LESCOL XL [Concomitant]
  11. FOSAMAX [Concomitant]
  12. CALCIUM               (CALCIUM) [Concomitant]
  13. VITAMIN   C (VITAMIN C) [Concomitant]

REACTIONS (4)
  - BLISTER [None]
  - POST PROCEDURAL COMPLICATION [None]
  - SKIN EXFOLIATION [None]
  - THERMAL BURN [None]
